FAERS Safety Report 13383415 (Version 2)
Quarter: 2024Q2

REPORT INFORMATION
  Report Type: Spontaneous
  Country: US (occurrence: US)
  Receive Date: 20170329
  Receipt Date: 20240528
  Transmission Date: 20240716
  Serious: Yes (Hospitalization, Other)
  Sender: FDA-Public Use
  Company Number: US-INCYTE CORPORATION-2017IN002198

PATIENT

DRUGS (3)
  1. JAKAFI [Suspect]
     Active Substance: RUXOLITINIB
     Indication: Myelofibrosis
     Dosage: 15 MG, BID
     Route: 048
  2. COUMADIN                           /00014802/ [Concomitant]
     Indication: Product used for unknown indication
  3. ASPIRIN [Concomitant]
     Active Substance: ASPIRIN
     Indication: Product used for unknown indication

REACTIONS (11)
  - Transient ischaemic attack [Unknown]
  - Vision blurred [Unknown]
  - Confusional state [Unknown]
  - Feeling abnormal [Unknown]
  - Fatigue [Unknown]
  - Burning sensation [Unknown]
  - Therapeutic product effect decreased [Unknown]
  - Night sweats [Unknown]
  - Platelet count increased [Unknown]
  - Dyspnoea [Unknown]
  - Weight increased [Unknown]
